FAERS Safety Report 4439276-3 (Version None)
Quarter: 2004Q3

REPORT INFORMATION
  Report Type: 
  Country: None (occurrence: None)
  Receive Date: 20040728
  Receipt Date: 20040419
  Transmission Date: 20050211
  Serious: No
  Sender: FDA-Public Use
  Company Number: USA040465369

PATIENT
  Age: 42 Year
  Sex: Female

DRUGS (3)
  1. STRATTERA [Suspect]
     Indication: ATTENTION DEFICIT/HYPERACTIVITY DISORDER
     Dosage: 40 MG IN THE MORNING
     Dates: start: 20040416
  2. EFFEXOR [Concomitant]
  3. CLONAZEPAM [Concomitant]

REACTIONS (2)
  - FATIGUE [None]
  - HEADACHE [None]
